FAERS Safety Report 8435561-9 (Version None)
Quarter: 2012Q2

REPORT INFORMATION
  Report Type: 
  Country: None (occurrence: None)
  Receive Date: 20120608
  Receipt Date: 20120604
  Transmission Date: 20120825
  Serious: Yes (Death, Life-Threatening, Hospitalization)
  Sender: FDA-Public Use
  Company Number: 2012SP009165

PATIENT
  Age: 59 Year
  Sex: Male
  Weight: 89 kg

DRUGS (3)
  1. VIRAFERONPEG [Suspect]
     Indication: HEPATITIS C
     Dosage: 1 DF;QOW
     Dates: end: 20111017
  2. VICTRELIS [Suspect]
     Indication: HEPATITIS C
     Dates: end: 20111017
  3. REBETOL [Suspect]
     Indication: HEPATITIS C
     Dates: end: 20111017

REACTIONS (21)
  - BREATH ODOUR [None]
  - HEPATIC ENCEPHALOPATHY [None]
  - METABOLIC DISORDER [None]
  - SEPSIS [None]
  - HEPATORENAL SYNDROME [None]
  - HEPATIC FAILURE [None]
  - CYTOLYTIC HEPATITIS [None]
  - GASTROINTESTINAL HAEMORRHAGE [None]
  - COMPLICATIONS OF TRANSPLANTED LIVER [None]
  - VIRAL LOAD INCREASED [None]
  - RENAL FAILURE [None]
  - HEPATITIS C [None]
  - DIALYSIS [None]
  - GENERAL PHYSICAL HEALTH DETERIORATION [None]
  - IRRITABILITY [None]
  - HEPATIC CIRRHOSIS [None]
  - DISEASE RECURRENCE [None]
  - THROMBOCYTOPENIA [None]
  - ANAEMIA [None]
  - HYPOGLYCAEMIA [None]
  - LIVER TRANSPLANT [None]
